FAERS Safety Report 21017675 (Version 2)
Quarter: 2023Q4

REPORT INFORMATION
  Report Type: Report from Study
  Country: FR (occurrence: FR)
  Receive Date: 20220628
  Receipt Date: 20231108
  Transmission Date: 20240110
  Serious: Yes (Hospitalization)
  Sender: FDA-Public Use
  Company Number: FR-Merck Healthcare KGaA-9330497

PATIENT
  Age: 60 Year
  Sex: Female
  Weight: 37 kg

DRUGS (8)
  1. AVELUMAB [Suspect]
     Active Substance: AVELUMAB
     Indication: Oesophageal squamous cell carcinoma metastatic
     Route: 042
     Dates: start: 20220614
  2. REGORAFENIB [Suspect]
     Active Substance: REGORAFENIB
     Indication: Oesophageal squamous cell carcinoma metastatic
     Route: 048
     Dates: start: 20220601
  3. REGORAFENIB [Suspect]
     Active Substance: REGORAFENIB
     Route: 048
     Dates: start: 20220614
  4. ACETAMINOPHEN [Concomitant]
     Active Substance: ACETAMINOPHEN
     Indication: Premedication
     Dosage: EVERY 6 HOURS AS REQUIRED
  5. GABAPENTIN [Concomitant]
     Active Substance: GABAPENTIN
     Indication: Premedication
     Dosage: MORNING, NOON AND NIGHT
  6. PHLOROGLUCINOL\1,3,5-TRIMETHOXYBENZENE [Concomitant]
     Active Substance: PHLOROGLUCINOL\1,3,5-TRIMETHOXYBENZENE
     Indication: Premedication
     Dosage: 80/80: 2 TABS EVERY 8 HOURS AS REQUIRED
  7. OXYCONTIN [Concomitant]
     Active Substance: OXYCODONE HYDROCHLORIDE
     Indication: Premedication
     Dosage: MORNING AND NIGHT
  8. OXYCODONE [Concomitant]
     Active Substance: OXYCODONE
     Indication: Premedication
     Dosage: EVERY 4 HOURS AS REQUIRED

REACTIONS (1)
  - Infusion related reaction [Recovered/Resolved]

NARRATIVE: CASE EVENT DATE: 20220614
